FAERS Safety Report 5088244-X (Version None)
Quarter: 2006Q3

REPORT INFORMATION
  Report Type: 
  Country: None (occurrence: None)
  Receive Date: 20060727
  Receipt Date: 20060611
  Transmission Date: 20061208
  Serious: Yes (Other)
  Sender: FDA-Public Use
  Company Number: 2006075327

PATIENT
  Sex: Male

DRUGS (5)
  1. LYRICA [Suspect]
     Indication: ILL-DEFINED DISORDER
     Dosage: 600 MG (300 MG, 2 IN 1 D)
     Route: 065
  2. TEGRETOL [Suspect]
     Indication: ILL-DEFINED DISORDER
     Dosage: UNKNOWN
     Route: 065
  3. OXYCONTIN (OXYCODONE HYDROCHLORIDE, PARACETAMOL) [Concomitant]
  4. NORTRIPTYLINE HCL [Concomitant]
  5. NEURONTIN [Concomitant]

REACTIONS (1)
  - PAIN IN EXTREMITY [None]
